FAERS Safety Report 23313570 (Version 1)
Quarter: 2023Q4

REPORT INFORMATION
  Report Type: Spontaneous
  Country: AR (occurrence: AR)
  Receive Date: 20231219
  Receipt Date: 20231219
  Transmission Date: 20240109
  Serious: Yes (Other)
  Sender: FDA-Public Use
  Company Number: AR-BEH-2023166209

PATIENT
  Age: 55 Year
  Sex: Female

DRUGS (2)
  1. HUMAN IMMUNOGLOBULIN G [Suspect]
     Active Substance: HUMAN IMMUNOGLOBULIN G
     Indication: Stiff person syndrome
     Route: 042
  2. BACLOFEN [Concomitant]
     Active Substance: BACLOFEN
     Route: 065

REACTIONS (2)
  - Arterial thrombosis [Unknown]
  - Thalamic infarction [Unknown]
